FAERS Safety Report 20197745 (Version 3)
Quarter: 2022Q1

REPORT INFORMATION
  Report Type: Spontaneous
  Country: US (occurrence: US)
  Receive Date: 20211217
  Receipt Date: 20220307
  Transmission Date: 20220424
  Serious: No
  Sender: FDA-Public Use
  Company Number: US-CELGENE-USA-20211202820

PATIENT
  Sex: Female
  Weight: 70.370 kg

DRUGS (51)
  1. REVLIMID [Suspect]
     Active Substance: LENALIDOMIDE
     Indication: B-cell lymphoma
     Dosage: 20 MG
     Route: 048
     Dates: start: 20210305, end: 20210305
  2. REVLIMID [Suspect]
     Active Substance: LENALIDOMIDE
     Indication: Follicular lymphoma
     Dosage: 5 MG
     Route: 048
     Dates: start: 20210913
  3. REVLIMID [Suspect]
     Active Substance: LENALIDOMIDE
     Dosage: 5 MG
     Route: 048
     Dates: start: 20211019
  4. REVLIMID [Suspect]
     Active Substance: LENALIDOMIDE
     Dosage: 5 MG
     Route: 048
     Dates: start: 20211213
  5. RITUXIMAB [Suspect]
     Active Substance: RITUXIMAB
     Indication: Follicle centre lymphoma, follicular grade I, II, III
     Dosage: WEEKLY X4, THEN BIMONTHLY X12 FOR TOTAL 24 MONTHS THERAPY
     Route: 065
     Dates: start: 20080211, end: 20100401
  6. RITUXIMAB [Suspect]
     Active Substance: RITUXIMAB
     Route: 041
     Dates: start: 20180605, end: 20200630
  7. RITUXIMAB [Suspect]
     Active Substance: RITUXIMAB
     Dosage: 375 MILLIGRAM/SQ. METER DAYS 1, 8, 15, 22 OF CYCLE 1, THEN 375 MILLIGRAM/SQ. METER ON DAY 1 OR BIMON
     Route: 041
     Dates: start: 20210305, end: 20210305
  8. RITUXIMAB [Suspect]
     Active Substance: RITUXIMAB
     Route: 041
     Dates: start: 20210407, end: 20210722
  9. RITUXIMAB [Suspect]
     Active Substance: RITUXIMAB
     Dosage: 375 MG/SQ. METER IV ON DAYS 1, 8, 15, 22 OF CYCLE 1, THEN 375 MG/SQ. METER IV ON DAY 1 MONTHLY OR BI
     Route: 041
     Dates: start: 20211018
  10. RITUXIMAB [Suspect]
     Active Substance: RITUXIMAB
     Dosage: 1400 MG/11.7 ML (120 MG/ML)
     Route: 058
     Dates: start: 20211019
  11. COVID-19 Vaccine, MRNA (Moderna) (PF) IIM) [Concomitant]
     Indication: Immunisation
     Route: 030
     Dates: start: 20210212, end: 20210212
  12. COVID-19 Vaccine, MRNA (Moderna) (PF) IIM) [Concomitant]
     Route: 030
     Dates: start: 20210312, end: 20210312
  13. TYLENOL EXTRA STRENGTH [Concomitant]
     Active Substance: ACETAMINOPHEN
     Indication: Product used for unknown indication
     Route: 048
  14. ALBUTEROL [Concomitant]
     Active Substance: ALBUTEROL
     Indication: Product used for unknown indication
     Dosage: 2.5 MG/3 ML
     Route: 065
  15. ALLOPURINOL [Concomitant]
     Active Substance: ALLOPURINOL
     Indication: Product used for unknown indication
     Route: 048
  16. ASPIRIN [Concomitant]
     Active Substance: ASPIRIN
     Indication: Product used for unknown indication
     Route: 048
  17. CARVEDILOL [Concomitant]
     Active Substance: CARVEDILOL
     Indication: Product used for unknown indication
     Route: 048
  18. CEPHALEXIN [Concomitant]
     Active Substance: CEPHALEXIN
     Indication: Product used for unknown indication
     Route: 048
  19. CEPHALEXIN [Concomitant]
     Active Substance: CEPHALEXIN
     Dosage: 1500 MILLIGRAM
     Route: 065
     Dates: start: 202109
  20. CLOPIDOGREL [Concomitant]
     Active Substance: CLOPIDOGREL BISULFATE
     Indication: Product used for unknown indication
     Route: 048
  21. ACETAMINOPHEN\DIPHENHYDRAMINE HYDROCHLORIDE [Concomitant]
     Active Substance: ACETAMINOPHEN\DIPHENHYDRAMINE HYDROCHLORIDE
     Indication: Product used for unknown indication
     Dosage: 25-500 MILLIGRAM
     Route: 048
  22. DOCUSATE SODIUM [Concomitant]
     Active Substance: DOCUSATE SODIUM
     Indication: Product used for unknown indication
     Route: 048
  23. FLUOCINOLONE [Concomitant]
     Active Substance: FLUOCINOLONE
     Indication: Product used for unknown indication
     Route: 065
  24. FOLIC ACID [Concomitant]
     Active Substance: FOLIC ACID
     Indication: Product used for unknown indication
     Route: 048
  25. FUROSEMIDE [Concomitant]
     Active Substance: FUROSEMIDE
     Indication: Product used for unknown indication
     Route: 048
  26. GABAPENTIN [Concomitant]
     Active Substance: GABAPENTIN
     Indication: Product used for unknown indication
     Route: 048
  27. GLIMEPIRIDE [Concomitant]
     Active Substance: GLIMEPIRIDE
     Indication: Product used for unknown indication
     Route: 048
  28. ACETAMINOPHEN\HYDROCODONE [Concomitant]
     Active Substance: ACETAMINOPHEN\HYDROCODONE
     Indication: Product used for unknown indication
     Dosage: 5-325 MILLIGRAM
     Route: 048
  29. KETOCONAZOLE [Concomitant]
     Active Substance: KETOCONAZOLE
     Indication: Product used for unknown indication
     Route: 065
  30. KETOCONAZOLE [Concomitant]
     Active Substance: KETOCONAZOLE
     Route: 065
     Dates: start: 20210913
  31. LEVOTHYROXINE [Concomitant]
     Active Substance: LEVOTHYROXINE
     Indication: Product used for unknown indication
     Route: 048
  32. LORATADINE [Concomitant]
     Active Substance: LORATADINE
     Indication: Product used for unknown indication
     Route: 048
  33. MELATONIN [Concomitant]
     Active Substance: MELATONIN
     Indication: Product used for unknown indication
     Route: 048
  34. MELATONIN [Concomitant]
     Active Substance: MELATONIN
     Dosage: 30 MILLIGRAM
     Route: 048
     Dates: start: 20210913
  35. METOLAZONE [Concomitant]
     Active Substance: METOLAZONE
     Indication: Product used for unknown indication
     Route: 048
  36. MUPIROCIN [Concomitant]
     Active Substance: MUPIROCIN
     Indication: Product used for unknown indication
     Route: 048
  37. MUPIROCIN [Concomitant]
     Active Substance: MUPIROCIN
     Dosage: 1APPLICATION BID TO THE NOSTRILS
     Route: 045
     Dates: start: 20210913
  38. Myrbetriq Tb24 Extended Release tablets [Concomitant]
     Indication: Product used for unknown indication
     Route: 048
  39. OMEPRAZOLE [Concomitant]
     Active Substance: OMEPRAZOLE
     Indication: Product used for unknown indication
     Route: 048
  40. OXYBUTYNIN [Concomitant]
     Active Substance: OXYBUTYNIN
     Indication: Product used for unknown indication
     Dosage: 24 HOUR TABLET
     Route: 048
  41. Oxygen-air delivery systems Misc [Concomitant]
     Indication: Product used for unknown indication
     Route: 065
  42. POLYETHYLENE GLYCOL [Concomitant]
     Active Substance: POLYETHYLENE GLYCOL
     Indication: Product used for unknown indication
     Dosage: 1450 BULK POWDER
     Route: 065
  43. POTASSIUM CHLORIDE [Concomitant]
     Active Substance: POTASSIUM CHLORIDE
     Indication: Product used for unknown indication
     Route: 048
  44. POTASSIUM CHLORIDE [Concomitant]
     Active Substance: POTASSIUM CHLORIDE
     Route: 041
     Dates: start: 20211102
  45. ROSUVASTATIN [Concomitant]
     Active Substance: ROSUVASTATIN
     Indication: Product used for unknown indication
     Route: 048
  46. SCOPOLAMINE [Concomitant]
     Active Substance: SCOPOLAMINE
     Indication: Product used for unknown indication
     Dosage: 1 MILLIGRAM OVER 3 DAYS
     Route: 065
  47. WIXELA INHUB [Concomitant]
     Active Substance: FLUTICASONE PROPIONATE\SALMETEROL XINAFOATE
     Indication: Product used for unknown indication
     Dosage: 250-50 MICROGRAM/DOSE DISKUS
     Route: 065
  48. Heparin preservative-free injection [Concomitant]
     Indication: Product used for unknown indication
     Dosage: 10 UNITS/ML
     Route: 065
  49. ACETAMINOPHEN [Concomitant]
     Active Substance: ACETAMINOPHEN
     Indication: Product used for unknown indication
     Route: 048
     Dates: start: 20211019
  50. DIPHENHYDRAMINE [Concomitant]
     Active Substance: DIPHENHYDRAMINE
     Indication: Product used for unknown indication
     Route: 048
     Dates: start: 20211019
  51. HEPARIN SODIUM, PORCINE [Concomitant]
     Active Substance: HEPARIN SODIUM
     Indication: Product used for unknown indication
     Dosage: 50 UNITS
     Route: 041
     Dates: start: 20211102

REACTIONS (4)
  - Blister [Recovering/Resolving]
  - Dyskinesia [Recovered/Resolved]
  - Nausea [Recovering/Resolving]
  - Vascular insufficiency [Unknown]

NARRATIVE: CASE EVENT DATE: 20210101
